FAERS Safety Report 9121213 (Version 2)
Quarter: 2014Q1

REPORT INFORMATION
  Report Type: Spontaneous
  Country: IT (occurrence: IT)
  Receive Date: 20130225
  Receipt Date: 20140103
  Transmission Date: 20141002
  Serious: Yes (Hospitalization, Other)
  Sender: FDA-Public Use
  Company Number: IT-BRISTOL-MYERS SQUIBB COMPANY-17386657

PATIENT
  Age: 85 Year
  Sex: Male

DRUGS (1)
  1. COUMADIN TABS 5 MG [Suspect]
     Dosage: INTERRUPTED ON: 17SEP2013
     Route: 048
     Dates: start: 20120101

REACTIONS (5)
  - Confusional state [Recovered/Resolved]
  - Dysarthria [Recovered/Resolved]
  - Hallucination, visual [Recovered/Resolved]
  - Urinary tract infection [Recovered/Resolved]
  - Overdose [Unknown]
